FAERS Safety Report 5330693-6 (Version None)
Quarter: 2007Q2

REPORT INFORMATION
  Report Type: 
  Country: None (occurrence: None)
  Receive Date: 20070522
  Receipt Date: 20070517
  Transmission Date: 20071010
  Serious: Yes (Hospitalization)
  Sender: FDA-Public Use
  Company Number: PHEH2007US07425

PATIENT
  Age: 52 Year
  Sex: Female

DRUGS (6)
  1. TEKTURNA [Suspect]
     Indication: HYPERTENSION
     Dosage: 150 MG, QD
     Route: 048
     Dates: start: 20070417, end: 20070506
  2. HUMULIN 70/30 [Concomitant]
     Indication: DIABETES MELLITUS
     Dosage: SLIDING SCALE
     Route: 058
  3. VICODIN ES [Concomitant]
     Indication: BACK PAIN
     Dosage: UNK, PRN
     Route: 048
  4. ASPIRIN [Concomitant]
     Indication: PROPHYLAXIS
     Dosage: 81 MG, QD
     Route: 048
  5. LASIX [Concomitant]
     Indication: FLUID RETENTION
     Dosage: 40 MG, QD
     Route: 048
  6. VITAMIN CAP [Concomitant]

REACTIONS (2)
  - RASH [None]
  - STEVENS-JOHNSON SYNDROME [None]
